FAERS Safety Report 9380627 (Version 2)
Quarter: 2013Q4

REPORT INFORMATION
  Report Type: Spontaneous
  Country: US (occurrence: US)
  Receive Date: 20130702
  Receipt Date: 20131213
  Transmission Date: 20140711
  Serious: Yes (Death)
  Sender: FDA-Public Use
  Company Number: US-B.I. PHARMACEUTICALS,INC./RIDGEFIELD-2013-BI-18733BP

PATIENT
  Sex: Male
  Weight: 107.5 kg

DRUGS (6)
  1. PRADAXA [Suspect]
     Indication: ANTICOAGULANT THERAPY
     Dosage: 300 MG
     Dates: start: 20110131, end: 20110626
  2. PRADAXA [Suspect]
     Indication: ATRIAL FIBRILLATION
  3. MULTIVITAMIN [Concomitant]
  4. OMEGA 3 FATTY ACID [Concomitant]
  5. VITAMIN C [Concomitant]
  6. VITAMIN E [Concomitant]

REACTIONS (1)
  - Gastrointestinal haemorrhage [Fatal]
